FAERS Safety Report 4864211-3 (Version None)
Quarter: 2005Q4

REPORT INFORMATION
  Report Type: 
  Country: None (occurrence: None)
  Receive Date: 20051219
  Receipt Date: 20051205
  Transmission Date: 20060501
  Serious: Yes (Hospitalization)
  Sender: FDA-Public Use
  Company Number: 220118

PATIENT
  Age: 82 Year
  Sex: Male
  Weight: 71 kg

DRUGS (5)
  1. MABTHERA (RITUXIMAB) CONOC FOR SLUTION FOR INFUSION [Suspect]
     Indication: LYMPHOMA
     Dosage: 500 MG, INTRAVENOUS
     Route: 042
     Dates: start: 20010420, end: 20040630
  2. ZEVALIN [Suspect]
     Indication: LYMPHOMA
     Dosage: INTRAVENOUS
     Route: 042
     Dates: start: 20040630, end: 20040630
  3. FLUDARABINE PHOSPHATE [Concomitant]
  4. NOVANTRONE [Concomitant]
  5. SOLU-MEDROL [Concomitant]

REACTIONS (8)
  - DRUG EFFECT DECREASED [None]
  - LYMPHADENOPATHY [None]
  - MASS [None]
  - METASTASES TO LIVER [None]
  - PNEUMOCOCCAL SEPSIS [None]
  - POLYNEUROPATHY [None]
  - RADICULOPATHY [None]
  - THERAPEUTIC RESPONSE DECREASED [None]
